FAERS Safety Report 14189010 (Version 4)
Quarter: 2018Q1

REPORT INFORMATION
  Report Type: Spontaneous
  Country: GB (occurrence: GB)
  Receive Date: 20171115
  Receipt Date: 20180308
  Transmission Date: 20180508
  Serious: Yes (Other)
  Sender: FDA-Public Use
  Company Number: GB-009507513-1711GBR002864

PATIENT
  Sex: Female

DRUGS (1)
  1. NEXPLANON [Suspect]
     Active Substance: ETONOGESTREL
     Indication: CONTRACEPTION
     Dosage: ONE IMPLANT 3 YEARLY
     Route: 059
     Dates: start: 20150226, end: 20171103

REACTIONS (3)
  - Abortion [Recovered/Resolved]
  - Pregnancy with implant contraceptive [Recovered/Resolved]
  - Unintended pregnancy [Recovered/Resolved]

NARRATIVE: CASE EVENT DATE: 2017
